FAERS Safety Report 9308935 (Version 1)
Quarter: 2013Q2

REPORT INFORMATION
  Report Type: Spontaneous
  Country: US (occurrence: US)
  Receive Date: 20130524
  Receipt Date: 20130524
  Transmission Date: 20140414
  Serious: Yes (Other)
  Sender: FDA-Public Use
  Company Number: US-ASTRAZENECA-2013SE34314

PATIENT
  Sex: Male

DRUGS (2)
  1. ZOLADEX [Suspect]
     Route: 058
  2. XGEVA [Suspect]
     Indication: PROSTATE CANCER
     Route: 065

REACTIONS (1)
  - Cardiac failure [Unknown]
